FAERS Safety Report 16156258 (Version 1)
Quarter: 2019Q2

REPORT INFORMATION
  Report Type: Spontaneous
  Country: US (occurrence: US)
  Receive Date: 20190404
  Receipt Date: 20190404
  Transmission Date: 20190711
  Serious: No
  Sender: FDA-Public Use
  Company Number: US-ELI_LILLY_AND_COMPANY-US201903013932

PATIENT
  Sex: Female

DRUGS (1)
  1. HUMATROPE [Suspect]
     Active Substance: SOMATROPIN
     Indication: HYPOPITUITARISM
     Dosage: 6 X PER WEEK PER 3/11/2019, UNKNOWN
     Route: 058

REACTIONS (4)
  - Overdose [Unknown]
  - Wrong dose [Unknown]
  - Injection site coldness [Unknown]
  - Injection site pain [Unknown]
